FAERS Safety Report 9245581 (Version 1)
Quarter: 2013Q2

REPORT INFORMATION
  Report Type: Spontaneous
  Country: US (occurrence: US)
  Receive Date: 20130422
  Receipt Date: 20130422
  Transmission Date: 20140414
  Serious: No
  Sender: FDA-Public Use
  Company Number: US-PFIZER INC-2013120917

PATIENT
  Age: 46 Year
  Sex: Female
  Weight: 56.69 kg

DRUGS (2)
  1. SERTRALINE HCL [Suspect]
     Indication: ANXIETY
     Dosage: 50 MG, SINGLE
     Dates: start: 201303, end: 201303
  2. SERTRALINE HCL [Suspect]
     Indication: DEPRESSION

REACTIONS (3)
  - Insomnia [Recovered/Resolved]
  - Muscle tightness [Recovered/Resolved]
  - Discomfort [Recovered/Resolved]
